FAERS Safety Report 8918616 (Version 1)
Quarter: 2012Q4

REPORT INFORMATION
  Report Type: 
  Country: US (occurrence: US)
  Receive Date: 20121120
  Receipt Date: 20121120
  Transmission Date: 20130627
  Serious: Yes (Other)
  Sender: FDA-Public Use
  Company Number: US-ASTRAZENECA-2010SE54757

PATIENT
  Age: 65 Year
  Sex: Female

DRUGS (3)
  1. NEXIUM [Suspect]
     Dosage: EVERY TWO DAYS
     Route: 048
  2. NEXIUM [Suspect]
     Dosage: EVERY DAY INSTEAD OF EVERY TWO DAYS
     Route: 048
  3. ZANTAC [Concomitant]

REACTIONS (2)
  - Foot fracture [Unknown]
  - Intentional drug misuse [Unknown]
